FAERS Safety Report 8858877 (Version 3)
Quarter: 2013Q1

REPORT INFORMATION
  Report Type: Spontaneous
  Country: US (occurrence: US)
  Receive Date: 20121024
  Receipt Date: 20130116
  Transmission Date: 20140127
  Serious: No
  Sender: FDA-Public Use
  Company Number: US-009507513-1210USA005737

PATIENT
  Age: 19 Year
  Sex: Female

DRUGS (2)
  1. IMPLANON [Suspect]
     Indication: CONTRACEPTION
     Dosage: 68 MG/VERY THREE YEARS
     Dates: start: 20121003
  2. IMPLANON [Suspect]
     Dosage: 1 DF, UNK

REACTIONS (2)
  - Device difficult to use [Unknown]
  - No adverse event [Unknown]
